FAERS Safety Report 7275616 (Version 3)
Quarter: 2014Q1

REPORT INFORMATION
  Report Type: Spontaneous
  Country: US (occurrence: US)
  Receive Date: 20100211
  Receipt Date: 20140113
  Transmission Date: 20141002
  Serious: Yes (Hospitalization, Other)
  Sender: FDA-Public Use
  Company Number: US-BAYER-201013320NA

PATIENT
  Age: 24 Year
  Sex: Female
  Weight: 74 kg

DRUGS (2)
  1. YASMIN [Suspect]
     Indication: HAEMOGLOBIN DECREASED
     Dates: start: 2008
  2. LEVLEN [Suspect]
     Dosage: UNK
     Dates: start: 20070703, end: 2008

REACTIONS (9)
  - Cholecystitis [Unknown]
  - Bile duct stone [Recovering/Resolving]
  - Cholecystitis chronic [None]
  - Jaundice cholestatic [Recovered/Resolved]
  - Abdominal pain [Unknown]
  - Vomiting [Unknown]
  - Abdominal pain upper [Recovering/Resolving]
  - Nausea [Recovering/Resolving]
  - Vomiting [Recovering/Resolving]
